FAERS Safety Report 14750861 (Version 2)
Quarter: 2018Q3

REPORT INFORMATION
  Report Type: Spontaneous
  Country: DE (occurrence: DE)
  Receive Date: 20180412
  Receipt Date: 20180712
  Transmission Date: 20181010
  Serious: No
  Sender: FDA-Public Use
  Company Number: DE-BAUSCH-BL-2018-009474

PATIENT
  Sex: Male

DRUGS (7)
  1. VENLAFAXIN [Suspect]
     Active Substance: VENLAFAXINE HYDROCHLORIDE
     Route: 065
  2. CLOMIPRAMINE [Suspect]
     Active Substance: CLOMIPRAMINE
     Indication: OBSESSIVE-COMPULSIVE DISORDER
     Route: 048
     Dates: start: 1995, end: 2015
  3. MILNACIPRAN [Suspect]
     Active Substance: MILNACIPRAN
     Dosage: DOSE INCREASED
     Route: 065
  4. VENLAFAXIN [Suspect]
     Active Substance: VENLAFAXINE HYDROCHLORIDE
     Route: 065
  5. VENLAFAXIN [Suspect]
     Active Substance: VENLAFAXINE HYDROCHLORIDE
     Route: 065
  6. MILNACIPRAN [Suspect]
     Active Substance: MILNACIPRAN
     Indication: PRODUCT USED FOR UNKNOWN INDICATION
     Route: 065
  7. VENLAFAXIN [Suspect]
     Active Substance: VENLAFAXINE HYDROCHLORIDE
     Indication: OBSESSIVE-COMPULSIVE DISORDER
     Route: 048

REACTIONS (11)
  - Sleep disorder [Recovering/Resolving]
  - Drug effect incomplete [Not Recovered/Not Resolved]
  - Disturbance in attention [Recovering/Resolving]
  - Listless [Recovering/Resolving]
  - Affective disorder [Recovering/Resolving]
  - Language disorder [Recovered/Resolved]
  - Influenza like illness [Recovered/Resolved]
  - Constipation [Recovered/Resolved]
  - Hyperhidrosis [Recovered/Resolved]
  - Micturition frequency decreased [Recovering/Resolving]
  - Libido decreased [Recovering/Resolving]
